FAERS Safety Report 5826759-4 (Version None)
Quarter: 2008Q3

REPORT INFORMATION
  Report Type: 
  Country: None (occurrence: None)
  Receive Date: 20080728
  Receipt Date: 20080728
  Transmission Date: 20090109
  Serious: Yes (Hospitalization)
  Sender: FDA-Public Use
  Company Number: None

PATIENT
  Sex: Male
  Weight: 91.6266 kg

DRUGS (1)
  1. DOXYCYCLINE 50MG WEST-WARD [Suspect]
     Indication: INFECTION PROPHYLAXIS
     Dosage: 14        2 X A DAY PO
     Route: 048
     Dates: start: 20080707, end: 20080713

REACTIONS (5)
  - ENCEPHALITIS [None]
  - MEDICATION ERROR [None]
  - NERVOUS SYSTEM DISORDER [None]
  - VISION BLURRED [None]
  - VISUAL IMPAIRMENT [None]
